FAERS Safety Report 24159697 (Version 1)
Quarter: 2024Q3

REPORT INFORMATION
  Report Type: Spontaneous
  Country: JP (occurrence: JP)
  Receive Date: 20240731
  Receipt Date: 20240731
  Transmission Date: 20241017
  Serious: Yes (Hospitalization)
  Sender: EISAI
  Company Number: JP-Eisai-EC-2024-171079

PATIENT
  Sex: Female

DRUGS (2)
  1. LENVIMA [Suspect]
     Active Substance: LENVATINIB
     Indication: Endometrial cancer
     Dosage: DOSE AND FREQUENCY UNKNOWN
     Route: 048
     Dates: start: 20240208
  2. KEYTRUDA [Concomitant]
     Active Substance: PEMBROLIZUMAB
     Indication: Endometrial cancer
     Route: 042
     Dates: start: 20240208

REACTIONS (4)
  - Decreased appetite [Not Recovered/Not Resolved]
  - Blood thyroid stimulating hormone increased [Unknown]
  - Somnolence [Unknown]
  - Abnormal sensation in eye [Unknown]

NARRATIVE: CASE EVENT DATE: 20240724
